FAERS Safety Report 10027470 (Version 1)
Quarter: 2014Q1

REPORT INFORMATION
  Report Type: Spontaneous
  Country: US (occurrence: US)
  Receive Date: 20140321
  Receipt Date: 20140321
  Transmission Date: 20141002
  Serious: No
  Sender: FDA-Public Use
  Company Number: US-PFIZER INC-2014079769

PATIENT
  Age: 43 Year
  Sex: Female

DRUGS (4)
  1. EFFEXOR [Suspect]
     Dosage: 225 MG, UNK
  2. WELLBUTRIN [Suspect]
     Dosage: 450 MG, UNK
  3. ADDERALL [Suspect]
     Indication: ATTENTION DEFICIT/HYPERACTIVITY DISORDER
     Dosage: 30 MG, UNK
  4. KLONOPIN [Suspect]
     Indication: INITIAL INSOMNIA
     Dosage: 5 MG, UNK

REACTIONS (1)
  - Libido decreased [Unknown]
